FAERS Safety Report 16379680 (Version 1)
Quarter: 2019Q2

REPORT INFORMATION
  Report Type: Spontaneous
  Country: DE (occurrence: DE)
  Receive Date: 20190531
  Receipt Date: 20190531
  Transmission Date: 20190711
  Serious: Yes (Other)
  Sender: FDA-Public Use
  Company Number: DE-MYLANLABS-2019M1051193

PATIENT
  Age: 40 Year
  Sex: Male
  Weight: 102 kg

DRUGS (1)
  1. LEPONEX [Suspect]
     Active Substance: CLOZAPINE
     Indication: PSYCHOTIC DISORDER
     Dosage: 175 MILLIGRAM, QD
     Route: 048
     Dates: start: 20040823

REACTIONS (5)
  - Condition aggravated [Recovered/Resolved]
  - Myoglobin blood increased [Recovered/Resolved]
  - Transaminases increased [Recovered/Resolved]
  - Hepatic enzyme increased [Recovered/Resolved]
  - Blood creatine phosphokinase increased [Recovered/Resolved]

NARRATIVE: CASE EVENT DATE: 20040830
